FAERS Safety Report 13797745 (Version 2)
Quarter: 2017Q3

REPORT INFORMATION
  Report Type: Spontaneous
  Country: VN (occurrence: VN)
  Receive Date: 20170727
  Receipt Date: 20170807
  Transmission Date: 20171127
  Serious: Yes (Hospitalization, Other)
  Sender: FDA-Public Use
  Company Number: VN-009507513-1707VNM009674

PATIENT

DRUGS (4)
  1. MIDAZOLAM [Concomitant]
     Active Substance: MIDAZOLAM HYDROCHLORIDE
     Dosage: DOSE: 2.5 MG/ML
     Dates: start: 20170620, end: 20170620
  2. ESMERON [Suspect]
     Active Substance: ROCURONIUM BROMIDE
     Dosage: 40 MG, UNK
     Dates: start: 20170620, end: 20170620
  3. PROPOFOL. [Concomitant]
     Active Substance: PROPOFOL
     Dosage: DOSE: 120 MG
     Dates: start: 20170620, end: 20170620
  4. SUFENTANIL [Concomitant]
     Active Substance: SUFENTANIL
     Dosage: DOSE: 107 PER TIME
     Dates: start: 20170620, end: 20170620

REACTIONS (6)
  - Blood pressure abnormal [Unknown]
  - Adverse event [Unknown]
  - Chills [Unknown]
  - Tachycardia [Unknown]
  - Rash generalised [Unknown]
  - Heart rate decreased [Unknown]

NARRATIVE: CASE EVENT DATE: 201706
